FAERS Safety Report 9748042 (Version 2)
Quarter: 2013Q4

REPORT INFORMATION
  Report Type: Spontaneous
  Country: US (occurrence: US)
  Receive Date: 20131212
  Receipt Date: 20131212
  Transmission Date: 20140711
  Serious: Yes (Other)
  Sender: FDA-Public Use
  Company Number: US-TEVA-387545USA

PATIENT
  Age: 31 Year
  Sex: Female
  Weight: 84.9 kg

DRUGS (2)
  1. PARAGARD 380A [Suspect]
     Indication: CONTRACEPTION
     Route: 015
     Dates: start: 2006, end: 20130120
  2. PHENTERMINE [Concomitant]
     Indication: OBESITY
     Dates: start: 201208, end: 201212

REACTIONS (8)
  - Pregnancy with contraceptive device [Unknown]
  - Complication of pregnancy [Unknown]
  - Drug ineffective [Unknown]
  - Uterine haemorrhage [Recovered/Resolved]
  - Migraine [Recovered/Resolved]
  - Pelvic pain [Recovered/Resolved]
  - Menstruation irregular [Recovered/Resolved]
  - Nausea [Unknown]
